FAERS Safety Report 7694364-3 (Version None)
Quarter: 2011Q3

REPORT INFORMATION
  Report Type: 
  Country: None (occurrence: None)
  Receive Date: 20110819
  Receipt Date: 20110816
  Transmission Date: 20111222
  Serious: Yes (Other)
  Sender: FDA-Public Use
  Company Number: GB-MERCK-1108GBR00072

PATIENT
  Age: 69 Year
  Sex: Male

DRUGS (4)
  1. METFORMIN HCL [Suspect]
     Indication: TYPE 2 DIABETES MELLITUS
     Route: 065
  2. RAMIPRIL [Suspect]
     Indication: TYPE 2 DIABETES MELLITUS
     Route: 065
  3. ZOCOR [Suspect]
     Indication: HYPERCHOLESTEROLAEMIA
     Route: 048
  4. ASPIRIN [Suspect]
     Indication: TYPE 2 DIABETES MELLITUS
     Route: 065

REACTIONS (5)
  - SKIN DISCOLOURATION [None]
  - RASH ERYTHEMATOUS [None]
  - NAEVUS FLAMMEUS [None]
  - SKIN LESION [None]
  - RASH MACULAR [None]
